FAERS Safety Report 4616850-2 (Version None)
Quarter: 2005Q1

REPORT INFORMATION
  Report Type: 
  Country: None (occurrence: None)
  Receive Date: 20050321
  Receipt Date: 19990307
  Transmission Date: 20050727
  Serious: Yes (Hospitalization)
  Sender: FDA-Public Use
  Company Number: 7011

PATIENT
  Age: 71 Year
  Sex: Female

DRUGS (7)
  1. GLYCERYL TRINITRATE [Suspect]
     Indication: ANGINA PECTORIS
     Route: 060
     Dates: start: 19990202, end: 19990202
  2. FRUSEMIDE [Concomitant]
  3. THYROXINE [Concomitant]
  4. LISINOPRIL [Concomitant]
  5. ATENOLOL [Concomitant]
  6. FLUOXETINE HCL [Concomitant]
  7. WARFARIN SODIUM [Concomitant]

REACTIONS (2)
  - SWOLLEN TONGUE [None]
  - TONGUE DISORDER [None]
